FAERS Safety Report 23708374 (Version 6)
Quarter: 2024Q4

REPORT INFORMATION
  Report Type: Spontaneous
  Country: US (occurrence: US)
  Receive Date: 20240404
  Receipt Date: 20241111
  Transmission Date: 20250115
  Serious: No
  Sender: CALLIDITAS THERAPEUTICS AB
  Company Number: US-Calliditas-2024CAL00525

PATIENT
  Age: 58 Year
  Sex: Male
  Weight: 76 kg

DRUGS (5)
  1. TARPEYO [Suspect]
     Active Substance: BUDESONIDE
     Indication: IgA nephropathy
     Dosage: 16MG (4MG CAPSULES) ONCE DAILY
     Route: 048
     Dates: start: 20240322
  2. CLOBETASOL [Concomitant]
     Active Substance: CLOBETASOL
  3. DAPSONE [Concomitant]
     Active Substance: DAPSONE
  4. FEXOFENADINE [Concomitant]
     Active Substance: FEXOFENADINE HYDROCHLORIDE
  5. VITAMIN B12 [Concomitant]
     Active Substance: CYANOCOBALAMIN

REACTIONS (8)
  - Diarrhoea [Not Recovered/Not Resolved]
  - Nervousness [Recovering/Resolving]
  - Vasculitis [Unknown]
  - Muscle spasms [Not Recovered/Not Resolved]
  - Headache [Unknown]
  - Proteinuria [Unknown]
  - Rash [Unknown]
  - Dehydration [Unknown]

NARRATIVE: CASE EVENT DATE: 20240401
